FAERS Safety Report 8339534-6 (Version None)
Quarter: 2012Q2

REPORT INFORMATION
  Report Type: 
  Country: None (occurrence: None)
  Receive Date: 20120507
  Receipt Date: 20120430
  Transmission Date: 20120825
  Serious: Yes (Hospitalization)
  Sender: FDA-Public Use
  Company Number: PHHY2012FR037575

PATIENT
  Sex: Male

DRUGS (1)
  1. VOLTAREN [Suspect]
     Indication: SCIATICA
     Dosage: UNK
     Route: 048
     Dates: start: 20120105, end: 20120112

REACTIONS (9)
  - DIARRHOEA [None]
  - INTESTINAL ULCER [None]
  - COLITIS ISCHAEMIC [None]
  - SERUM FERRITIN INCREASED [None]
  - C-REACTIVE PROTEIN INCREASED [None]
  - ABDOMINAL PAIN [None]
  - RECTAL HAEMORRHAGE [None]
  - BLOOD BILIRUBIN INCREASED [None]
  - TRANSAMINASES INCREASED [None]
